FAERS Safety Report 9241070 (Version 1)
Quarter: 2013Q2

REPORT INFORMATION
  Report Type: Spontaneous
  Country: FR (occurrence: FR)
  Receive Date: 20130419
  Receipt Date: 20130419
  Transmission Date: 20140414
  Serious: Yes (Other)
  Sender: FDA-Public Use
  Company Number: FR-JNJFOC-20130402412

PATIENT
  Age: 74 Year
  Sex: Male

DRUGS (10)
  1. HALDOL [Suspect]
     Indication: PRODUCT USED FOR UNKNOWN INDICATION
     Dosage: 20 DROPS ONCE A DAY
     Route: 048
     Dates: start: 20121217, end: 20121224
  2. PARKINANE LP [Concomitant]
     Route: 048
     Dates: end: 20121216
  3. CORDARONE [Concomitant]
     Route: 065
  4. LASILIX [Concomitant]
     Route: 048
  5. TRIATEC [Concomitant]
     Route: 048
  6. ELISOR [Concomitant]
     Route: 048
  7. XANAX [Concomitant]
     Route: 048
  8. KARDEGIC [Concomitant]
     Route: 048
  9. IMOVANE [Concomitant]
     Route: 048
  10. DEPAMIDE [Concomitant]
     Route: 048

REACTIONS (3)
  - Dyskinesia [Unknown]
  - Hypertonia [Unknown]
  - Hypokinesia [Unknown]
